FAERS Safety Report 10334949 (Version 1)
Quarter: 2014Q3

REPORT INFORMATION
  Report Type: Report from Study
  Country: GB (occurrence: GB)
  Receive Date: 20140723
  Receipt Date: 20140723
  Transmission Date: 20150326
  Serious: Yes (Hospitalization)
  Sender: FDA-Public Use
  Company Number: GB-ASTRAZENECA-2014SE50365

PATIENT
  Age: 61 Year
  Sex: Male

DRUGS (3)
  1. STUDY PROCEDURE [Suspect]
     Active Substance: INVESTIGATIONAL PRODUCT
     Indication: ACUTE CORONARY SYNDROME
     Route: 065
  2. TICAGRELOR [Suspect]
     Active Substance: TICAGRELOR
     Indication: ACUTE CORONARY SYNDROME
     Dosage: MAINTENANCE
     Route: 048
  3. ASPIRIN (NON-AZ DRUG) [Suspect]
     Active Substance: ASPIRIN
     Indication: ACUTE CORONARY SYNDROME
     Dosage: MAINTENANCE
     Route: 048

REACTIONS (3)
  - Haemoglobin decreased [None]
  - Haemorrhage [None]
  - Femoral artery dissection [Recovered/Resolved]

NARRATIVE: CASE EVENT DATE: 20140430
